FAERS Safety Report 4718318-1 (Version None)
Quarter: 2005Q3

REPORT INFORMATION
  Report Type: 
  Country: None (occurrence: None)
  Receive Date: 20050720
  Receipt Date: 20050711
  Transmission Date: 20060218
  Serious: Yes (Hospitalization)
  Sender: FDA-Public Use
  Company Number: US-BRISTOL-MYERS SQUIBB COMPANY-13031919

PATIENT
  Age: 57 Year
  Sex: Male

DRUGS (8)
  1. CISPLATIN [Suspect]
     Indication: OESOPHAGEAL CARCINOMA
     Dosage: GIVEN ON DAY 1 AND 8 PER CYCLE
     Route: 042
     Dates: start: 20050525, end: 20050525
  2. CAMPTOSAR [Suspect]
     Indication: GASTROOESOPHAGEAL CANCER
     Dosage: GIVEN ON DAY 1 AND DAY 8 EACH CYCLE
     Route: 042
     Dates: start: 20050525
  3. FLUOROURACIL [Suspect]
     Indication: OESOPHAGEAL CARCINOMA
     Dosage: GIVEN ON DAYS 1-14 OF EACH CYCLE
     Route: 042
     Dates: start: 20050525
  4. METOPROLOL [Concomitant]
  5. METRONIDAZOLE [Concomitant]
  6. PROTONIX [Concomitant]
  7. LOPERAMIDE [Concomitant]
  8. ZOFRAN [Concomitant]

REACTIONS (5)
  - DEHYDRATION [None]
  - DIARRHOEA [None]
  - NAUSEA [None]
  - PANCYTOPENIA [None]
  - VOMITING [None]
